FAERS Safety Report 6507938-X (Version None)
Quarter: 2009Q4

REPORT INFORMATION
  Report Type: 
  Country: None (occurrence: None)
  Receive Date: 20091221
  Receipt Date: 20091214
  Transmission Date: 20100525
  Serious: Yes (Hospitalization)
  Sender: FDA-Public Use
  Company Number: B0609639A

PATIENT
  Sex: Female

DRUGS (5)
  1. REQUIP [Suspect]
     Indication: PARKINSON'S DISEASE
     Dosage: 1.5MG PER DAY
     Route: 048
     Dates: start: 20091125, end: 20091125
  2. CHINESE MEDICINE [Concomitant]
     Dosage: 2.5G PER DAY
     Route: 048
     Dates: start: 20091105, end: 20091126
  3. ACTONEL [Concomitant]
     Indication: OSTEOPOROSIS
     Dosage: 2.5MG PER DAY
     Route: 048
     Dates: start: 20091105, end: 20091126
  4. MENESIT [Concomitant]
     Indication: PARKINSON'S DISEASE
     Dosage: 300MG PER DAY
     Route: 048
     Dates: start: 20091113
  5. JUVELA N [Concomitant]
     Indication: DRUG USE FOR UNKNOWN INDICATION
     Dosage: 600MG PER DAY
     Route: 048
     Dates: start: 20091105, end: 20091126

REACTIONS (3)
  - DYSURIA [None]
  - OVERDOSE [None]
  - SOMNOLENCE [None]
